FAERS Safety Report 25042078 (Version 1)
Quarter: 2025Q1

REPORT INFORMATION
  Report Type: Spontaneous
  Country: IN (occurrence: None)
  Receive Date: 20250305
  Receipt Date: 20250305
  Transmission Date: 20250409
  Serious: Yes (Other)
  Sender: INFORLIFE
  Company Number: IN-INFO-20250041

PATIENT
  Age: 51 Year
  Sex: Female

DRUGS (8)
  1. MIDAZOLAM [Suspect]
     Active Substance: MIDAZOLAM
     Indication: Premedication
     Route: 040
  2. PROPOFOL [Suspect]
     Active Substance: PROPOFOL
     Indication: Induction of anaesthesia
     Route: 040
  3. LACTATED RINGERS SOLUTION [Concomitant]
     Active Substance: CALCIUM CHLORIDE\POTASSIUM CHLORIDE\SODIUM CHLORIDE\SODIUM LACTATE
     Route: 040
  4. FENTANYL [Suspect]
     Active Substance: FENTANYL
     Indication: Premedication
     Route: 040
  5. VECURONIUM [Suspect]
     Active Substance: VECURONIUM BROMIDE
     Indication: Induction of anaesthesia
     Route: 040
  6. OXYGEN [Concomitant]
     Active Substance: OXYGEN
  7. SEVOFLURANE [Suspect]
     Active Substance: SEVOFLURANE
  8. NITROUS OXIDE [Concomitant]
     Active Substance: NITROUS OXIDE

REACTIONS (1)
  - Parotid gland enlargement [Recovered/Resolved]
